FAERS Safety Report 14533010 (Version 2)
Quarter: 2018Q2

REPORT INFORMATION
  Report Type: Report from Study
  Country: US (occurrence: US)
  Receive Date: 20180215
  Receipt Date: 20180413
  Transmission Date: 20180711
  Serious: Yes (Hospitalization, Other)
  Sender: FDA-Public Use
  Company Number: US-ROCHE-2067483

PATIENT
  Sex: Male

DRUGS (1)
  1. ESBRIET [Suspect]
     Active Substance: PIRFENIDONE
     Indication: IDIOPATHIC PULMONARY FIBROSIS
     Dosage: ONGOING; UNKNOWN
     Route: 048

REACTIONS (4)
  - Pneumonia viral [Unknown]
  - Urinary tract infection [Not Recovered/Not Resolved]
  - Dyspnoea [Unknown]
  - Cystitis [Unknown]
